FAERS Safety Report 7562020-8 (Version None)
Quarter: 2011Q2

REPORT INFORMATION
  Report Type: 
  Country: None (occurrence: None)
  Receive Date: 20110622
  Receipt Date: 20110607
  Transmission Date: 20111010
  Serious: Yes (Hospitalization)
  Sender: FDA-Public Use
  Company Number: PHHY2011CA48237

PATIENT

DRUGS (3)
  1. RASILEZ HCT [Suspect]
  2. ANGIOTENSIN II ANTAGONISTS [Concomitant]
  3. DIURETICS [Concomitant]

REACTIONS (2)
  - CEREBROVASCULAR ACCIDENT [None]
  - DRUG INEFFECTIVE [None]
